FAERS Safety Report 8123673-9 (Version None)
Quarter: 2012Q1

REPORT INFORMATION
  Report Type: 
  Country: None (occurrence: None)
  Receive Date: 20120208
  Receipt Date: 20120206
  Transmission Date: 20120608
  Serious: Yes (Death, Hospitalization)
  Sender: FDA-Public Use
  Company Number: PHEH2012US001303

PATIENT
  Sex: Male

DRUGS (2)
  1. EXJADE [Suspect]
     Indication: CHRONIC LYMPHOCYTIC LEUKAEMIA
     Dosage: 1000 MG, QD
     Route: 048
  2. EXJADE [Suspect]
     Indication: NEOPLASM

REACTIONS (3)
  - PNEUMONIA [None]
  - PLEURAL EFFUSION [None]
  - DEATH [None]
